FAERS Safety Report 9700903 (Version 2)
Quarter: 2013Q4

REPORT INFORMATION
  Report Type: Report from Study
  Country: IT (occurrence: IT)
  Receive Date: 20131121
  Receipt Date: 20131220
  Transmission Date: 20140711
  Serious: Yes (Life-Threatening, Hospitalization)
  Sender: FDA-Public Use
  Company Number: IT-CELGENEUS-083-50794-13111903

PATIENT
  Age: 62 Year
  Sex: Male

DRUGS (9)
  1. VIDAZA [Suspect]
     Indication: MYELODYSPLASTIC SYNDROME
     Dosage: 75 MILLIGRAM/SQ. METER
     Route: 065
     Dates: start: 20120731, end: 20120806
  2. VIDAZA [Suspect]
     Dosage: 55 MILLIGRAM/SQ. METER
     Route: 065
     Dates: start: 20120914, end: 20120920
  3. VIDAZA [Suspect]
     Dosage: 55 MILLIGRAM/SQ. METER
     Route: 065
     Dates: start: 20121026, end: 20121101
  4. FLUCONAZOL [Concomitant]
     Indication: INFECTION PROPHYLAXIS
     Dosage: 200 MILLIGRAM
     Route: 065
     Dates: start: 20120824, end: 20131115
  5. X-PREP [Concomitant]
     Indication: CONSTIPATION
     Dosage: 2 DOSAGE FORMS
     Route: 065
     Dates: start: 20120712
  6. MOVICOL [Concomitant]
     Indication: CONSTIPATION
     Dosage: 2 DOSAGE FORMS
     Route: 065
     Dates: start: 20120821
  7. DAFLON [Concomitant]
     Indication: HAEMORRHOIDS
     Route: 065
     Dates: start: 20121123
  8. PROCTOSEDYL [Concomitant]
     Indication: HAEMORRHOIDS
     Route: 065
     Dates: start: 20121123
  9. EXJADE [Concomitant]
     Indication: PROPHYLAXIS
     Dosage: 1000 MILLIGRAM
     Route: 065
     Dates: start: 20121123

REACTIONS (1)
  - Sepsis [Recovered/Resolved]
